FAERS Safety Report 8818990 (Version 1)
Quarter: 2012Q4

REPORT INFORMATION
  Report Type: 
  Country: US (occurrence: US)
  Receive Date: 20121001
  Receipt Date: 20121001
  Transmission Date: 20130627
  Serious: Yes (Other)
  Sender: FDA-Public Use
  Company Number: US-JNJFOC-20120909962

PATIENT
  Age: 7 Year
  Sex: Male
  Weight: 30.84 kg

DRUGS (2)
  1. CONCERTA [Suspect]
     Indication: ATTENTION DEFICIT/HYPERACTIVITY DISORDER
     Route: 048
     Dates: start: 20120921
  2. ZOLOFT [Concomitant]
     Route: 048
     Dates: start: 2012

REACTIONS (1)
  - Self injurious behaviour [Unknown]
